FAERS Safety Report 18535417 (Version 1)
Quarter: 2020Q4

REPORT INFORMATION
  Report Type: Spontaneous
  Country: US (occurrence: US)
  Receive Date: 20201123
  Receipt Date: 20201123
  Transmission Date: 20210114
  Serious: No
  Sender: FDA-Public Use
  Company Number: US-ROCHE-2519973

PATIENT
  Sex: Female
  Weight: 68.1 kg

DRUGS (1)
  1. TAMIFLU [Suspect]
     Active Substance: OSELTAMIVIR PHOSPHATE
     Indication: INFLUENZA
     Dosage: 75 MG TWICE DAILY FOR 5 DAYS
     Route: 048

REACTIONS (2)
  - Hallucination [Recovered/Resolved]
  - Influenza [Not Recovered/Not Resolved]
